FAERS Safety Report 6747815-2 (Version None)
Quarter: 2010Q2

REPORT INFORMATION
  Report Type: 
  Country: None (occurrence: None)
  Receive Date: 20100528
  Receipt Date: 20100518
  Transmission Date: 20101027
  Serious: Yes (Other)
  Sender: FDA-Public Use
  Company Number: PHHY2010DE32812

PATIENT
  Sex: Male

DRUGS (1)
  1. CERTICAN [Suspect]
     Dosage: UNK

REACTIONS (2)
  - BILE DUCT NECROSIS [None]
  - BILIARY ISCHAEMIA [None]
